FAERS Safety Report 5591283-3 (Version None)
Quarter: 2008Q1

REPORT INFORMATION
  Report Type: 
  Country: None (occurrence: None)
  Receive Date: 20080111
  Receipt Date: 20080103
  Transmission Date: 20080703
  Serious: Yes (Death)
  Sender: FDA-Public Use
  Company Number: US020360

PATIENT
  Age: 43 Year
  Sex: Male

DRUGS (4)
  1. ACTIQ [Suspect]
     Indication: BACK PAIN
     Dosage: BUCCAL
     Route: 002
     Dates: end: 20070612
  2. ACTIQ [Suspect]
     Indication: BACK PAIN
     Dosage: BUCCAL
     Route: 002
     Dates: start: 20070617, end: 20070618
  3. FENTANYL TRANSDERMAL SYSTEM [Suspect]
     Indication: BACK PAIN
     Dosage: TRANSDERMAL
     Route: 062
     Dates: start: 20070617, end: 20070618
  4. FENTANYL TRANSDERMAL SYSTEM [Suspect]
     Indication: BACK PAIN
     Dosage: TRANSDERMAL
     Route: 062
     Dates: start: 20070617, end: 20070618

REACTIONS (4)
  - ACCIDENTAL OVERDOSE [None]
  - ECONOMIC PROBLEM [None]
  - INAPPROPRIATE SCHEDULE OF DRUG ADMINISTRATION [None]
  - SHOCK [None]
